FAERS Safety Report 22211779 (Version 2)
Quarter: 2023Q2

REPORT INFORMATION
  Report Type: Spontaneous
  Country: DE (occurrence: DE)
  Receive Date: 20230414
  Receipt Date: 20230512
  Transmission Date: 20230722
  Serious: Yes (Other)
  Sender: FDA-Public Use
  Company Number: DE-TEVA-2023-DE-2875573

PATIENT
  Age: 46 Year
  Sex: Female
  Weight: 79 kg

DRUGS (4)
  1. AJOVY [Suspect]
     Active Substance: FREMANEZUMAB-VFRM
     Indication: Migraine
     Route: 065
     Dates: start: 20221225
  2. AMITRIPTYLINE [Concomitant]
     Active Substance: AMITRIPTYLINE
     Indication: Tension headache
     Dosage: 10 MILLIGRAM DAILY; EVENING 0-0-1
     Dates: start: 20221124
  3. RIZATRIPTAN [Concomitant]
     Active Substance: RIZATRIPTAN
     Indication: Migraine
     Dosage: AS NEEDED, ONGOING
     Dates: start: 20221124
  4. VALSARTAN [Concomitant]
     Active Substance: VALSARTAN
     Indication: Blood pressure abnormal
     Dosage: 80 MILLIGRAM DAILY; 1-0-0 MORNING
     Dates: start: 20161107

REACTIONS (2)
  - Hypertensive crisis [Recovered/Resolved]
  - Hypertension [Recovered/Resolved]

NARRATIVE: CASE EVENT DATE: 20230313
